FAERS Safety Report 8237493-8 (Version None)
Quarter: 2012Q1

REPORT INFORMATION
  Report Type: 
  Country: None (occurrence: None)
  Receive Date: 20120327
  Receipt Date: 20120323
  Transmission Date: 20120608
  Serious: Yes (Death, Hospitalization)
  Sender: FDA-Public Use
  Company Number: PHHY2012GR025980

PATIENT
  Age: 74 Year
  Sex: Male

DRUGS (3)
  1. CIPROFLOXACIN [Suspect]
  2. VANCOMYCIN [Concomitant]
     Indication: STAPHYLOCOCCAL BACTERAEMIA
  3. GENTAMICIN [Suspect]

REACTIONS (10)
  - LEUKOPENIA [None]
  - FUNGAEMIA [None]
  - TRICHOSPORON INFECTION [None]
  - KLEBSIELLA INFECTION [None]
  - ACINETOBACTER INFECTION [None]
  - MULTI-ORGAN DISORDER [None]
  - SEPTIC SHOCK [None]
  - DEATH [None]
  - HAEMATOCRIT DECREASED [None]
  - PLATELET COUNT DECREASED [None]
